FAERS Safety Report 7626365-5 (Version None)
Quarter: 2011Q3

REPORT INFORMATION
  Report Type: 
  Country: None (occurrence: None)
  Receive Date: 20110721
  Receipt Date: 20110718
  Transmission Date: 20111222
  Serious: Yes (Death)
  Sender: FDA-Public Use
  Company Number: PHHY2011US64533

PATIENT
  Age: 87 Year
  Sex: Male

DRUGS (2)
  1. BETA BLOCKING AGENTS [Concomitant]
     Dosage: UNK UKN, UNK
  2. RECLAST [Suspect]
     Dosage: UNK UKN, UNK
     Route: 042
     Dates: start: 20090801

REACTIONS (2)
  - CARDIAC ARREST [None]
  - RESPIRATORY FAILURE [None]
